FAERS Safety Report 7266154-7 (Version None)
Quarter: 2011Q1

REPORT INFORMATION
  Report Type: 
  Country: None (occurrence: None)
  Receive Date: 20110131
  Receipt Date: 20110121
  Transmission Date: 20110831
  Serious: Yes (Other)
  Sender: FDA-Public Use
  Company Number: US-JNJFOC-20110100442

PATIENT
  Sex: Female
  Weight: 58.97 kg

DRUGS (4)
  1. WELLBUTRIN [Concomitant]
     Indication: DEPRESSION
  2. FOLIC ACID [Concomitant]
     Indication: ARTHRITIS
  3. REMICADE [Suspect]
     Indication: COLITIS ULCERATIVE
     Route: 042
  4. METHOTREXATE [Concomitant]
     Indication: ARTHRITIS

REACTIONS (4)
  - DEPRESSION [None]
  - LACERATION [None]
  - CELLULITIS [None]
  - ARTHRITIS [None]
